FAERS Safety Report 6200336-8 (Version None)
Quarter: 2009Q2

REPORT INFORMATION
  Report Type: 
  Country: None (occurrence: None)
  Receive Date: 20090522
  Receipt Date: 20090520
  Transmission Date: 20091009
  Serious: Yes (Hospitalization)
  Sender: FDA-Public Use
  Company Number: PHHO2009US05961

PATIENT
  Sex: Male
  Weight: 116.6 kg

DRUGS (3)
  1. STARLIX DJN+TAB [Suspect]
     Indication: GLUCOSE TOLERANCE IMPAIRED
     Dosage: LEVEL 1
     Route: 048
     Dates: start: 20031113
  2. STARLIX DJN+TAB [Suspect]
     Dosage: LEVEL 2
     Route: 048
  3. VALSARTAN [Suspect]
     Dosage: UNK
     Dates: start: 20031130

REACTIONS (1)
  - GASTROENTERITIS [None]
